FAERS Safety Report 6318913-2 (Version None)
Quarter: 2009Q3

REPORT INFORMATION
  Report Type: 
  Country: None (occurrence: None)
  Receive Date: 20090821
  Receipt Date: 20080812
  Transmission Date: 20100115
  Serious: No
  Sender: FDA-Public Use
  Company Number: US-ABBOTT-08P-163-0470083-00

PATIENT
  Sex: Female
  Weight: 90.8 kg

DRUGS (5)
  1. NIASPAN [Suspect]
     Indication: BLOOD CHOLESTEROL
     Route: 048
     Dates: start: 20080721, end: 20080812
  2. HYDROCHLOROTHIAZIDE [Concomitant]
     Indication: SWELLING
     Route: 048
     Dates: start: 20070101
  3. LANSOPRAZOLE [Concomitant]
     Indication: GASTRITIS PROPHYLAXIS
     Route: 048
     Dates: start: 20070101
  4. LORATADINE [Concomitant]
     Indication: HYPERSENSITIVITY
     Route: 048
     Dates: start: 20070101
  5. ASPIRIN [Concomitant]
     Indication: PROPHYLAXIS
     Route: 048

REACTIONS (6)
  - BURNING SENSATION [None]
  - DIZZINESS [None]
  - ERYTHEMA [None]
  - HYPERVENTILATION [None]
  - ILL-DEFINED DISORDER [None]
  - PRURITUS [None]
